FAERS Safety Report 16994720 (Version 3)
Quarter: 2020Q2

REPORT INFORMATION
  Report Type: Spontaneous
  Country: US (occurrence: US)
  Receive Date: 20191105
  Receipt Date: 20200521
  Transmission Date: 20200713
  Serious: Yes (Other)
  Sender: FDA-Public Use
  Company Number: US-JNJFOC-20191047662

PATIENT
  Sex: Male

DRUGS (2)
  1. ZYTIGA [Suspect]
     Active Substance: ABIRATERONE ACETATE
     Indication: PRODUCT USED FOR UNKNOWN INDICATION
     Route: 048
  2. OXYBUTININ ACCORD [Concomitant]
     Route: 065
     Dates: end: 201912

REACTIONS (6)
  - Confusional state [Unknown]
  - Myalgia [Unknown]
  - Fatigue [Unknown]
  - Adverse drug reaction [Unknown]
  - Pain in extremity [Unknown]
  - Dizziness [Unknown]
